FAERS Safety Report 8620284-3 (Version None)
Quarter: 2012Q3

REPORT INFORMATION
  Report Type: 
  Country: None (occurrence: None)
  Receive Date: 20120816
  Receipt Date: 20120816
  Transmission Date: 20120928
  Serious: Yes (Hospitalization)
  Sender: FDA-Public Use
  Company Number: None

PATIENT
  Sex: Male
  Weight: 84.7 kg

DRUGS (5)
  1. PREDNISONE [Suspect]
     Dosage: 400 MG
  2. RITUXAN [Suspect]
     Dosage: 758 MG
  3. CYCLOPHOSPHAMIDE [Suspect]
     Dosage: 1520 MG
  4. VINCRISTINE SULFATE [Suspect]
     Dosage: 2 MG
  5. DOXORUBICIN HYDROCHLORIDE [Suspect]
     Dosage: 101 MG

REACTIONS (4)
  - ABDOMINAL DISTENSION [None]
  - SPLENIC VEIN THROMBOSIS [None]
  - VENOUS INJURY [None]
  - HAEMORRHAGIC ASCITES [None]
